FAERS Safety Report 7792898-4 (Version None)
Quarter: 2011Q4

REPORT INFORMATION
  Report Type: 
  Country: None (occurrence: None)
  Receive Date: 20111003
  Receipt Date: 20110919
  Transmission Date: 20120403
  Serious: Yes (Hospitalization, Disabling)
  Sender: FDA-Public Use
  Company Number: PHHY2011BR84087

PATIENT
  Age: 60 Year
  Sex: Male

DRUGS (3)
  1. DIOVAN [Suspect]
     Indication: HYPERTENSION
     Dosage: 1 DF, BID
  2. APRESOLINE [Suspect]
     Dosage: 50 MG (HALF TABLETS 3 TIMES/DAY)
  3. APRESOLINE [Suspect]
     Indication: HYPERTENSION
     Dosage: 25 MG, TID

REACTIONS (6)
  - PROSTATIC DISORDER [None]
  - MOVEMENT DISORDER [None]
  - WRONG TECHNIQUE IN DRUG USAGE PROCESS [None]
  - URINARY TRACT INFECTION [None]
  - LUNG DISORDER [None]
  - CEREBROVASCULAR ACCIDENT [None]
